FAERS Safety Report 4742099-9 (Version None)
Quarter: 2005Q3

REPORT INFORMATION
  Report Type: 
  Country: None (occurrence: None)
  Receive Date: 20050808
  Receipt Date: 20050721
  Transmission Date: 20060218
  Serious: Yes (Hospitalization)
  Sender: FDA-Public Use
  Company Number: JP_050606882

PATIENT
  Age: 63 Year
  Sex: Female

DRUGS (8)
  1. EVISTA [Suspect]
     Indication: OSTEOPOROSIS
     Dosage: 60 MG/1 DAY
     Dates: start: 20050401, end: 20050415
  2. LOCHOL (FLUVASTATIN SODIUM) [Concomitant]
  3. SAYMOTIN (KALLIDINOGENASE) [Concomitant]
  4. MECOBALAMIN [Concomitant]
  5. CALCITRIOL [Concomitant]
  6. CEPHADOL (DIFENIDOL HYDROCHLORIDE) [Concomitant]
  7. LASIX [Concomitant]
  8. SILECE (FLUNITRAZEPAM) [Concomitant]

REACTIONS (2)
  - BLOOD TRIGLYCERIDES INCREASED [None]
  - HEPATITIS ACUTE [None]
